FAERS Safety Report 17050408 (Version 3)
Quarter: 2020Q1

REPORT INFORMATION
  Report Type: Report from Study
  Country: US (occurrence: US)
  Receive Date: 20191119
  Receipt Date: 20200218
  Transmission Date: 20200409
  Serious: Yes (Hospitalization)
  Sender: FDA-Public Use
  Company Number: US-TAKEDA-2019TUS066258

PATIENT
  Sex: Male

DRUGS (15)
  1. PONATINIB [Suspect]
     Active Substance: PONATINIB
     Dosage: 15 MILLIGRAM, QD
     Route: 048
  2. AZELASTINE HCL [Concomitant]
     Active Substance: AZELASTINE HYDROCHLORIDE
     Dosage: UNK
  3. CLARITIN [Concomitant]
     Active Substance: LORATADINE
     Dosage: UNK
  4. PONATINIB [Suspect]
     Active Substance: PONATINIB
     Indication: ACUTE LYMPHOCYTIC LEUKAEMIA
     Dosage: 30 MILLIGRAM, QD
     Route: 048
  5. ASPIRIN 81 [Concomitant]
     Active Substance: ASPIRIN
     Dosage: UNK
  6. AMOXICILLIN. [Concomitant]
     Active Substance: AMOXICILLIN
     Dosage: UNK
  7. FLONASE                            /00908302/ [Concomitant]
     Active Substance: MOMETASONE FUROATE
     Dosage: UNK
  8. POTASSIUM [Concomitant]
     Active Substance: POTASSIUM
     Dosage: UNK
  9. PANTOPRAZOLE SODIUM. [Concomitant]
     Active Substance: PANTOPRAZOLE SODIUM
     Dosage: UNK
  10. ACYCLOVIR                          /00587301/ [Concomitant]
     Active Substance: ACYCLOVIR
     Dosage: UNK
  11. PONATINIB [Suspect]
     Active Substance: PONATINIB
     Dosage: 30 MILLIGRAM, QD
     Route: 048
  12. PREDNISONE. [Concomitant]
     Active Substance: PREDNISONE
     Dosage: UNK
  13. PENICILLIN V POTASSIUM. [Concomitant]
     Active Substance: PENICILLIN V POTASSIUM
     Dosage: UNK
  14. URSODIOL. [Concomitant]
     Active Substance: URSODIOL
     Dosage: UNK
  15. LISINOPRIL. [Concomitant]
     Active Substance: LISINOPRIL
     Dosage: UNK

REACTIONS (2)
  - Drug ineffective [Unknown]
  - Clostridium difficile infection [Unknown]
